FAERS Safety Report 18805292 (Version 2)
Quarter: 2021Q1

REPORT INFORMATION
  Report Type: Spontaneous
  Country: US (occurrence: US)
  Receive Date: 20210128
  Receipt Date: 20210129
  Transmission Date: 20210419
  Serious: Yes (Other)
  Sender: FDA-Public Use
  Company Number: US-PFIZER INC-2021074898

PATIENT
  Age: 48 Year
  Sex: Female

DRUGS (1)
  1. HYDROCORTISONE. [Suspect]
     Active Substance: HYDROCORTISONE
     Indication: ADDISON^S DISEASE
     Dosage: TAKES 12.5?15MG TOTAL DAILY DOSE DEPENDING ON HOW SHE IS THAT DAY
     Route: 048

REACTIONS (5)
  - Off label use [Unknown]
  - Therapeutic product effect incomplete [Unknown]
  - Product complaint [Unknown]
  - Poor quality product administered [Unknown]
  - Adrenocortical insufficiency acute [Not Recovered/Not Resolved]

NARRATIVE: CASE EVENT DATE: 20210110
